FAERS Safety Report 9217834 (Version 1)
Quarter: 2013Q2

REPORT INFORMATION
  Report Type: Report from Study
  Country: FR (occurrence: FR)
  Receive Date: 20130408
  Receipt Date: 20130408
  Transmission Date: 20140414
  Serious: Yes (Other)
  Sender: FDA-Public Use
  Company Number: FR-BAYER-2012-126228

PATIENT
  Age: 54 Year
  Sex: Female
  Weight: 49 kg

DRUGS (4)
  1. REGORAFENIB [Suspect]
     Indication: RECTOSIGMOID CANCER METASTATIC
     Dosage: 160 MG/DAY
     Route: 048
     Dates: start: 20120923, end: 20121015
  2. REGORAFENIB [Suspect]
     Indication: RECTOSIGMOID CANCER METASTATIC
     Dosage: 120 MG/DAY
     Route: 048
     Dates: start: 20121101, end: 20121116
  3. REGORAFENIB [Suspect]
     Indication: RECTOSIGMOID CANCER METASTATIC
     Dosage: 160 MG/DAY
     Route: 048
     Dates: start: 20121129, end: 20121219
  4. REGORAFENIB [Suspect]
     Indication: RECTOSIGMOID CANCER METASTATIC
     Dosage: 80 MG/DAY
     Route: 048
     Dates: start: 20121227, end: 20130116

REACTIONS (1)
  - Deep vein thrombosis [Recovered/Resolved]
